FAERS Safety Report 21642628 (Version 1)
Quarter: 2022Q4

REPORT INFORMATION
  Report Type: Report from Study
  Country: US (occurrence: US)
  Receive Date: 20221125
  Receipt Date: 20221125
  Transmission Date: 20230113
  Serious: Yes (Other)
  Sender: FDA-Public Use
  Company Number: US-Accord-287890

PATIENT

DRUGS (4)
  1. PACLITAXEL [Suspect]
     Active Substance: PACLITAXEL
     Indication: Pancreatic carcinoma
  2. DURVALUMAB [Concomitant]
     Active Substance: DURVALUMAB
     Indication: Pancreatic carcinoma
  3. GEMCITABINE [Concomitant]
     Active Substance: GEMCITABINE
     Indication: Pancreatic carcinoma
  4. OLECLUMAB [Concomitant]
     Active Substance: OLECLUMAB
     Indication: Pancreatic carcinoma

REACTIONS (3)
  - Drug-induced liver injury [Recovered/Resolved]
  - Neuropathy peripheral [Unknown]
  - Off label use [Unknown]
